FAERS Safety Report 5034459-6 (Version None)
Quarter: 2006Q2

REPORT INFORMATION
  Report Type: 
  Country: None (occurrence: None)
  Receive Date: 20060620
  Receipt Date: 20060609
  Transmission Date: 20061013
  Serious: Yes (Other)
  Sender: FDA-Public Use
  Company Number: 2006069055

PATIENT
  Age: 60 Year
  Sex: Male

DRUGS (3)
  1. CARDURA [Suspect]
     Indication: ILL-DEFINED DISORDER
     Dosage: ORAL
     Route: 048
     Dates: start: 20060101
  2. BETA BLOCKING AGENTS [Concomitant]
  3. HMG COA REDUCTASE INHIBITORS [Concomitant]

REACTIONS (2)
  - ANAEMIA [None]
  - NEOPLASM [None]
